FAERS Safety Report 16799212 (Version 4)
Quarter: 2021Q4

REPORT INFORMATION
  Report Type: Spontaneous
  Country: US (occurrence: US)
  Receive Date: 20190912
  Receipt Date: 20211221
  Transmission Date: 20220303
  Serious: No
  Sender: FDA-Public Use
  Company Number: US-PFIZER INC-2019393770

PATIENT
  Age: 71 Year
  Sex: Female
  Weight: 54.422 kg

DRUGS (8)
  1. FELDENE [Suspect]
     Active Substance: PIROXICAM
     Dosage: UNK
  2. PIROXICAM [Suspect]
     Active Substance: PIROXICAM
     Dosage: UNK
  3. ANSAID [Suspect]
     Active Substance: FLURBIPROFEN
     Dosage: UNK
  4. CEFACLOR [Suspect]
     Active Substance: CEFACLOR
     Dosage: UNK
  5. KEFLEX [Suspect]
     Active Substance: CEPHALEXIN
     Dosage: UNK
  6. KETOPROFEN [Suspect]
     Active Substance: KETOPROFEN
     Dosage: UNK
  7. LAMISIL [Suspect]
     Active Substance: TERBINAFINE HYDROCHLORIDE
     Dosage: UNK
  8. CECLOR [Suspect]
     Active Substance: CEFACLOR
     Dosage: UNK

REACTIONS (2)
  - Drug hypersensitivity [Unknown]
  - Pruritus [Unknown]

NARRATIVE: CASE EVENT DATE: 20200903
